FAERS Safety Report 10112232 (Version 3)
Quarter: 2014Q2

REPORT INFORMATION
  Report Type: Spontaneous
  Country: FR (occurrence: FR)
  Receive Date: 20140425
  Receipt Date: 20140430
  Transmission Date: 20141212
  Serious: Yes (Other)
  Sender: FDA-Public Use
  Company Number: PHHY2014FR047052

PATIENT
  Age: 37 Year
  Sex: Male

DRUGS (5)
  1. OMEPRAZOLE SANDOZ [Suspect]
     Indication: OESOPHAGITIS
     Dosage: 20 MG, QD
     Route: 065
  2. OMEPRAZOLE SANDOZ [Suspect]
     Dosage: 20 MG, QD
     Route: 065
     Dates: start: 20140410, end: 20140410
  3. PANTOPRAZOLE SANDOZ [Suspect]
     Indication: OESOPHAGITIS
     Dosage: 40 MG, QD
     Route: 065
  4. PANTOPRAZOLE SANDOZ [Suspect]
     Dosage: 20 MG, QD
  5. FLAGYL [Concomitant]
     Indication: DIVERTICULITIS

REACTIONS (2)
  - Arrhythmia [Unknown]
  - Drug ineffective [Unknown]
